FAERS Safety Report 15341370 (Version 1)
Quarter: 2018Q3

REPORT INFORMATION
  Report Type: Spontaneous
  Country: US (occurrence: US)
  Receive Date: 20180831
  Receipt Date: 20180831
  Transmission Date: 20181010
  Serious: Yes (Hospitalization, Other)
  Sender: FDA-Public Use
  Company Number: US-009507513-1808USA009305

PATIENT
  Age: 24 Year
  Sex: Female
  Weight: 63.49 kg

DRUGS (7)
  1. MIRENA [Suspect]
     Active Substance: LEVONORGESTREL
     Dosage: 20 MCG/24HR, CONT
     Route: 015
     Dates: start: 2008, end: 201212
  2. MOTRIN [Concomitant]
     Active Substance: IBUPROFEN
  3. PROMETHAZINE [Concomitant]
     Active Substance: PROMETHAZINE\PROMETHAZINE HYDROCHLORIDE
  4. LEXAPRO [Concomitant]
     Active Substance: ESCITALOPRAM OXALATE
  5. DOXYCYCLINE HYCLATE. [Concomitant]
     Active Substance: DOXYCYCLINE HYCLATE
  6. IMPLANON [Suspect]
     Active Substance: ETONOGESTREL
     Dosage: UNK
     Dates: start: 2009
  7. PERCOCET [Concomitant]
     Active Substance: ACETAMINOPHEN\OXYCODONE HYDROCHLORIDE

REACTIONS (12)
  - Pain [Unknown]
  - Menorrhagia [Unknown]
  - Scar [Unknown]
  - Depression [Unknown]
  - Device issue [Unknown]
  - Injury [Unknown]
  - Fallopian tube perforation [Unknown]
  - Anxiety [Unknown]
  - Drug ineffective [Unknown]
  - Uterine perforation [Unknown]
  - Ectopic pregnancy [Unknown]
  - Emotional distress [Unknown]

NARRATIVE: CASE EVENT DATE: 200811
